FAERS Safety Report 9251092 (Version 1)
Quarter: 2013Q1

REPORT INFORMATION
  Report Type: Spontaneous
  Country: US (occurrence: None)
  Receive Date: 20130305
  Receipt Date: 20130305
  Transmission Date: 20140127
  Serious: Yes (Other)
  Sender: FDA-Public Use
  Company Number: 163-21880-12060261

PATIENT
  Age: 63 Year
  Sex: Female
  Weight: 49.44 kg

DRUGS (14)
  1. REVLIMID [Suspect]
     Indication: PLASMA CELL MYELOMA
     Dosage: 21 IN 21 D
     Route: 048
     Dates: start: 20120207, end: 20120507
  2. ACYCLOVIR (ACICLOVIR)(TABLETS) [Concomitant]
  3. CALCITONIN (CALCITONIN) (SPRAY (NOT INHALATION)) [Concomitant]
  4. CALCIUM + D (OS-CAL)(CAPSULES) [Concomitant]
  5. DULERA (DULERA)(AEROSOL FOR INHALATION) [Concomitant]
  6. HYDROCODONE/APAP(VICODIN)(TABLETS) [Concomitant]
  7. NEXIUM(ESOMEPRAZOLE)(ENTERIC-COATED TABLET) [Concomitant]
  8. POTASSIUM(POTASSIUM) (TABLETS) [Concomitant]
  9. Q-TUSSIN(GUAIFENESIN)(SYRUP) [Concomitant]
  10. FLEXERIL(CYCLOBENZAPRINE HYDROCHLORIDE)(TABLETS) [Concomitant]
  11. NEURONTIN(GABAPENTIN) (CAPSULES) [Concomitant]
  12. PROMETHAZINE HCL(PROMETHAZINE [Concomitant]
  13. TRAMADOL HCL(TRAMADOL HYDROCHLORIDE)(TABLETS) [Concomitant]
  14. TYLENOL(PARACETAMOL)(TABLETS) [Concomitant]

REACTIONS (3)
  - Pancytopenia [None]
  - Rash [None]
  - Sciatica [None]
